FAERS Safety Report 6855524-4 (Version None)
Quarter: 2010Q3

REPORT INFORMATION
  Report Type: 
  Country: None (occurrence: None)
  Receive Date: 20100719
  Receipt Date: 20100709
  Transmission Date: 20110219
  Serious: Yes (Life-Threatening)
  Sender: FDA-Public Use
  Company Number: JP-SP-2010-03760

PATIENT
  Sex: Male

DRUGS (5)
  1. IMMUCYST [Suspect]
     Indication: PRODUCT USED FOR UNKNOWN INDICATION
     Route: 065
     Dates: start: 20100521, end: 20100528
  2. TOLTERODINE TARTRATE [Concomitant]
     Dates: start: 20100215, end: 20100615
  3. LANSOPRAZOLE [Concomitant]
     Dates: start: 20100316, end: 20100615
  4. REBAMIPIDE [Concomitant]
     Dates: start: 20100316, end: 20100615
  5. AMITRIPTYLINE HYDROCHLORIDE [Concomitant]
     Dates: start: 20100330, end: 20100615

REACTIONS (2)
  - ACUTE PRERENAL FAILURE [None]
  - ANAPHYLACTIC SHOCK [None]
